FAERS Safety Report 25608739 (Version 1)
Quarter: 2025Q3

REPORT INFORMATION
  Report Type: Spontaneous
  Country: US (occurrence: US)
  Receive Date: 20250726
  Receipt Date: 20250726
  Transmission Date: 20251020
  Serious: Yes (Life-Threatening, Hospitalization, Other)
  Sender: IPCA
  Company Number: US-IPCA LABORATORIES LIMITED-IPC-2025-US-001925

PATIENT

DRUGS (1)
  1. METFORMIN [Suspect]
     Active Substance: METFORMIN HYDROCHLORIDE
     Indication: Type 2 diabetes mellitus
     Route: 065

REACTIONS (3)
  - Lactic acidosis [Recovering/Resolving]
  - Shock [Recovered/Resolved]
  - Renal failure [Recovering/Resolving]
